FAERS Safety Report 6913736-5 (Version None)
Quarter: 2010Q3

REPORT INFORMATION
  Report Type: 
  Country: None (occurrence: None)
  Receive Date: 20100806
  Receipt Date: 20100806
  Transmission Date: 20110219
  Serious: Yes (Hospitalization, Disabling)
  Sender: FDA-Public Use
  Company Number: None

PATIENT
  Age: 86 Year
  Sex: Male
  Weight: 58.9676 kg

DRUGS (1)
  1. HALDOL [Suspect]
     Indication: DEMENTIA ALZHEIMER'S TYPE
     Dosage: HOSPITAL WOULD NOT PROVIDE INFO
     Dates: start: 20100701, end: 20100703

REACTIONS (1)
  - DISABILITY [None]
